FAERS Safety Report 18069936 (Version 3)
Quarter: 2021Q1

REPORT INFORMATION
  Report Type: Spontaneous
  Country: JP (occurrence: US)
  Receive Date: 20200727
  Receipt Date: 20210119
  Transmission Date: 20210419
  Serious: Yes (Hospitalization)
  Sender: FDA-Public Use
  Company Number: US-RECORDATI RARE DISEASES-2087754

PATIENT
  Age: 3 Year
  Sex: Female
  Weight: 9.4 kg

DRUGS (11)
  1. GASMOTIN [Concomitant]
     Active Substance: MOSAPRIDE CITRATE
  2. ALLELOCK [Concomitant]
     Active Substance: OLOPATADINE HYDROCHLORIDE
  3. CINAL [ZONISAMIDE] [Concomitant]
     Active Substance: ZONISAMIDE
  4. URALYT [Concomitant]
  5. E KEPPRA [Concomitant]
     Active Substance: LEVETIRACETAM
  6. FLAGYL [Concomitant]
     Active Substance: METRONIDAZOLE\METRONIDAZOLE HYDROCHLORIDE
  7. NEUQUINON [Concomitant]
     Active Substance: DIETARY SUPPLEMENT\UBIDECARENONE
  8. CARBAGLU [Suspect]
     Active Substance: CARGLUMIC ACID
     Indication: HYPERGLYCINAEMIA
     Route: 048
     Dates: start: 20171010
  9. L CARTIN FF [Concomitant]
     Active Substance: LEVOCARNITINE
     Route: 048
  10. XYZAL [Concomitant]
     Active Substance: LEVOCETIRIZINE DIHYDROCHLORIDE
  11. VITAMEDIN [Concomitant]
     Active Substance: CYANOCOBALAMIN\PYRIDOXINE HYDROCHLORIDE\THIAMINE

REACTIONS (4)
  - Upper respiratory tract inflammation [Recovering/Resolving]
  - Gastroenteritis norovirus [Recovering/Resolving]
  - Vomiting [Unknown]
  - Viral pharyngitis [Recovered/Resolved]

NARRATIVE: CASE EVENT DATE: 20191201
